FAERS Safety Report 10070255 (Version 1)
Quarter: 2014Q2

REPORT INFORMATION
  Report Type: Spontaneous
  Country: US (occurrence: None)
  Receive Date: 20140408
  Receipt Date: 20140408
  Transmission Date: 20141212
  Serious: Yes (Hospitalization)
  Sender: FDA-Public Use
  Company Number: 2014PL000054

PATIENT
  Age: 64 Year
  Sex: Female

DRUGS (14)
  1. AZATHIOPRINE [Suspect]
     Indication: SYSTEMIC LUPUS ERYTHEMATOSUS
     Route: 048
     Dates: start: 201304, end: 201305
  2. BENLYSTA [Suspect]
     Indication: SYSTEMIC LUPUS ERYTHEMATOSUS
     Route: 042
     Dates: start: 201206, end: 201305
  3. METHOTREXATE [Concomitant]
  4. DEXAMETHASONE [Concomitant]
  5. HYDROXYCHLOROQUINE SULPHATE (HYDROXYCHLOROQUINE SULFATE) [Concomitant]
  6. ATENOLOL [Concomitant]
  7. FRUSEMIDE (FUROSEMIDE) [Concomitant]
  8. CRESTOR (ROSUVASTATIN CALCIUM) [Concomitant]
  9. PRASTERONE [Concomitant]
  10. BIOTENE (FLUORINE, XYLITOL) [Concomitant]
  11. MULTIVITAMINS (ASCORBIC ACID, ERGOCALCIFEROL, FOLIC ACID, NICOTINAMIDE, PANTHENOL, RETINOL, RIBOFLAVIN, THIAMINE HYDROCHLORIDE) [Concomitant]
  12. NORTRIPTYLINE [Concomitant]
  13. TRAMADOL [Concomitant]
  14. CYMBALTA [Concomitant]

REACTIONS (2)
  - Wound [None]
  - Impaired healing [None]
